FAERS Safety Report 15974263 (Version 4)
Quarter: 2020Q1

REPORT INFORMATION
  Report Type: Report from Study
  Country: US (occurrence: US)
  Receive Date: 20190218
  Receipt Date: 20200227
  Transmission Date: 20200409
  Serious: Yes (Hospitalization, Other)
  Sender: FDA-Public Use
  Company Number: US-ROCHE-2252312

PATIENT
  Age: 55 Year
  Sex: Female
  Weight: 59.47 kg

DRUGS (8)
  1. OCREVUS [Suspect]
     Active Substance: OCRELIZUMAB
     Indication: RELAPSING MULTIPLE SCLEROSIS
     Dosage: SHE RECEIVED THE SECOND DOSE OF OCRELIZUMAB ON 23/JAN/2019
     Route: 042
     Dates: start: 20181217
  2. ZETIA [Concomitant]
     Active Substance: EZETIMIBE
     Indication: BLOOD CHOLESTEROL INCREASED
     Route: 048
  3. GABAPENTIN. [Concomitant]
     Active Substance: GABAPENTIN
     Indication: PAIN
  4. OCREVUS [Suspect]
     Active Substance: OCRELIZUMAB
     Route: 042
     Dates: start: 20181217
  5. SYNTHROID [Concomitant]
     Active Substance: LEVOTHYROXINE SODIUM
     Indication: HYPOTHYROIDISM
     Route: 048
  6. AMITRIPTYLINE [Concomitant]
     Active Substance: AMITRIPTYLINE
     Indication: MIGRAINE
     Route: 048
  7. LIVALO [Concomitant]
     Active Substance: PITAVASTATIN CALCIUM
     Indication: BLOOD CHOLESTEROL INCREASED
  8. OCREVUS [Suspect]
     Active Substance: OCRELIZUMAB
     Indication: RELAPSING-REMITTING MULTIPLE SCLEROSIS
     Dosage: SECOND DOSE
     Route: 042
     Dates: start: 20190123

REACTIONS (24)
  - Nausea [Unknown]
  - Headache [Not Recovered/Not Resolved]
  - Fall [Unknown]
  - Hepatic steatosis [Unknown]
  - Therapeutic response shortened [Unknown]
  - Optic neuritis [Not Recovered/Not Resolved]
  - Sepsis [Unknown]
  - Abdominal discomfort [Recovered/Resolved]
  - Muscular weakness [Recovered/Resolved]
  - Renal failure [Recovered/Resolved]
  - Abdominal pain upper [Unknown]
  - Vomiting [Unknown]
  - Asthenia [Not Recovered/Not Resolved]
  - Escherichia infection [Recovered/Resolved]
  - Hypotension [Recovered/Resolved]
  - Incoherent [Recovered/Resolved]
  - Visual impairment [Recovered/Resolved]
  - Balance disorder [Not Recovered/Not Resolved]
  - Migraine [Unknown]
  - Skin laceration [Recovered/Resolved]
  - Contusion [Recovered/Resolved]
  - Pneumonia [Recovered/Resolved]
  - Pain [Not Recovered/Not Resolved]
  - Vocal cord disorder [Recovering/Resolving]

NARRATIVE: CASE EVENT DATE: 20181217
